FAERS Safety Report 11692510 (Version 2)
Quarter: 2016Q1

REPORT INFORMATION
  Report Type: Spontaneous
  Country: US (occurrence: US)
  Receive Date: 20151103
  Receipt Date: 20160304
  Transmission Date: 20160525
  Serious: Yes (Hospitalization, Other)
  Sender: FDA-Public Use
  Company Number: US-PFIZER INC-2015371608

PATIENT
  Age: 45 Year
  Sex: Male

DRUGS (11)
  1. DEPO-TESTOSTERONE [Suspect]
     Active Substance: TESTOSTERONE CYPIONATE
     Indication: HORMONE REPLACEMENT THERAPY
     Dosage: UNK
     Dates: start: 200710, end: 201402
  2. ANDROGEL [Suspect]
     Active Substance: TESTOSTERONE
     Indication: LIBIDO DECREASED
  3. TESTOSTERONE CIPIONATE [Suspect]
     Active Substance: TESTOSTERONE
     Indication: FATIGUE
  4. TESTOSTERONE CIPIONATE [Suspect]
     Active Substance: TESTOSTERONE
     Indication: DEPRESSION
  5. ANDROGEL [Suspect]
     Active Substance: TESTOSTERONE
     Indication: ERECTILE DYSFUNCTION
  6. TESTOSTERONE CIPIONATE [Suspect]
     Active Substance: TESTOSTERONE
     Indication: HORMONE REPLACEMENT THERAPY
     Dosage: UNK, EVERY 2 WEEKS
     Dates: start: 2013, end: 2014
  7. TESTOSTERONE CIPIONATE [Suspect]
     Active Substance: TESTOSTERONE
     Indication: ERECTILE DYSFUNCTION
  8. ANDROGEL [Suspect]
     Active Substance: TESTOSTERONE
     Indication: HORMONE REPLACEMENT THERAPY
     Dosage: UNK, 2X/DAY (2 PUMPS TWICE DAILY)
     Dates: start: 200710, end: 201402
  9. ANDROGEL [Suspect]
     Active Substance: TESTOSTERONE
     Indication: FATIGUE
  10. ANDROGEL [Suspect]
     Active Substance: TESTOSTERONE
     Indication: DEPRESSION
  11. TESTOSTERONE CIPIONATE [Suspect]
     Active Substance: TESTOSTERONE
     Indication: LIBIDO DECREASED

REACTIONS (2)
  - Depression [Unknown]
  - Myocardial infarction [Unknown]

NARRATIVE: CASE EVENT DATE: 20131110
